FAERS Safety Report 8596931-1 (Version None)
Quarter: 2012Q3

REPORT INFORMATION
  Report Type: 
  Country: None (occurrence: None)
  Receive Date: 20120815
  Receipt Date: 20120803
  Transmission Date: 20120928
  Serious: Yes (Hospitalization)
  Sender: FDA-Public Use
  Company Number: DE-AMGEN-UK233480

PATIENT
  Age: 53 Year
  Sex: Male

DRUGS (16)
  1. INSULIN [Concomitant]
     Dosage: UNK UNK, UNK
     Dates: start: 20060912
  2. METOPROLOL SUCCINATE [Concomitant]
     Dosage: UNK UNK, BID
     Dates: start: 20070628
  3. ASPIRIN [Concomitant]
     Dosage: UNK UNK, QD
     Route: 048
     Dates: start: 20050121
  4. LACTULOSE [Concomitant]
     Dosage: UNK UNK, UNK
     Route: 048
     Dates: start: 20050121
  5. CALCITRIOL [Concomitant]
     Dosage: .5 A?G, QD
     Route: 048
     Dates: start: 20060912
  6. ALUMINUIM CHLORHYDROXIDE-COMPLEX [Concomitant]
     Dosage: UNK UNK, TID
     Dates: start: 20070120
  7. PROTAPHANE MC [Concomitant]
     Dosage: UNK UNK, UNK
     Dates: start: 20060912
  8. SODIUM BICARBONATE [Concomitant]
     Dosage: UNK UNK, TID
     Route: 048
     Dates: start: 20060912
  9. RAMIPRIL [Concomitant]
     Dosage: 5 MG, QD
     Dates: start: 20070628
  10. CINACALCET HYDROCHLORIDE [Suspect]
     Indication: HYPERPARATHYROIDISM SECONDARY
     Dosage: UNK UNK, QD
     Route: 048
     Dates: start: 20070213
  11. MARCUMAR [Concomitant]
     Dosage: UNK UNK, UNK
     Route: 065
     Dates: start: 20060912
  12. DEKRISTOL [Concomitant]
     Dosage: UNK UNK, UNK
     Route: 048
     Dates: start: 20060912
  13. HEPARIN [Concomitant]
     Dosage: 7500 IU, BID
     Route: 058
  14. VITARENAL [Concomitant]
     Dosage: UNK UNK, QD
     Route: 048
     Dates: start: 20060912
  15. NEURONTIN [Concomitant]
     Dosage: 300 MG, QD
     Route: 048
     Dates: start: 20060912
  16. CALCIUM [Concomitant]
     Dosage: 950 MG, TID
     Dates: start: 20070705

REACTIONS (3)
  - GASTRITIS [None]
  - DUODENAL ULCER [None]
  - GASTRIC ULCER [None]
